FAERS Safety Report 8780952 (Version 2)
Quarter: 2012Q4

REPORT INFORMATION
  Report Type: 
  Country: US (occurrence: US)
  Receive Date: 20120913
  Receipt Date: 20121009
  Transmission Date: 20130627
  Serious: No
  Sender: FDA-Public Use
  Company Number: US-009507513-1209USA003855

PATIENT
  Sex: Male

DRUGS (7)
  1. SAPHRIS [Suspect]
     Indication: BIPOLAR DISORDER
     Dosage: 5 mg, bid
     Route: 060
     Dates: start: 20110617
  2. SAPHRIS [Suspect]
     Indication: SCHIZOPHRENIA
  3. EFFEXOR XR [Concomitant]
     Dosage: 75 mg, qd
     Route: 048
  4. SEROQUEL [Concomitant]
     Dosage: 400 mg, bid
  5. HALDOL [Concomitant]
     Dosage: 2-5 mg, hs
  6. COGENTIN [Concomitant]
     Dosage: 1 mg, qd
  7. COGENTIN [Concomitant]
     Dosage: 1 mg, bid

REACTIONS (2)
  - Musculoskeletal discomfort [Not Recovered/Not Resolved]
  - Tendon pain [Recovering/Resolving]
